FAERS Safety Report 19242340 (Version 3)
Quarter: 2021Q3

REPORT INFORMATION
  Report Type: Report from Study
  Country: None (occurrence: US)
  Receive Date: 20210510
  Receipt Date: 20210803
  Transmission Date: 20211014
  Serious: Yes (Other)
  Sender: FDA-Public Use
  Company Number: US-ABBVIE-21K-163-3893877-00

PATIENT
  Age: 49 Year
  Sex: Female
  Weight: 122.58 kg

DRUGS (3)
  1. BUMETANIDE. [Concomitant]
     Active Substance: BUMETANIDE
     Indication: PRODUCT USED FOR UNKNOWN INDICATION
  2. KLOR?CON [Concomitant]
     Active Substance: POTASSIUM CHLORIDE
     Indication: PRODUCT USED FOR UNKNOWN INDICATION
  3. HUMIRA [Suspect]
     Active Substance: ADALIMUMAB
     Indication: HIDRADENITIS
     Dosage: CITRATE FREE
     Route: 058
     Dates: start: 20171017, end: 20210622

REACTIONS (5)
  - Hidradenitis [Recovering/Resolving]
  - Gait disturbance [Recovering/Resolving]
  - Therapeutic product effect incomplete [Unknown]
  - Pain [Unknown]
  - Proteus infection [Unknown]

NARRATIVE: CASE EVENT DATE: 2021
